FAERS Safety Report 17150314 (Version 1)
Quarter: 2019Q4

REPORT INFORMATION
  Report Type: Spontaneous
  Country: US (occurrence: US)
  Receive Date: 20191213
  Receipt Date: 20191213
  Transmission Date: 20200122
  Serious: No
  Sender: FDA-Public Use
  Company Number: US-BAYER-2019-226520

PATIENT
  Age: 68 Year
  Weight: 51 kg

DRUGS (2)
  1. GADAVIST [Suspect]
     Active Substance: GADOBUTROL
     Indication: MAGNETIC RESONANCE IMAGING BREAST
  2. GADAVIST [Suspect]
     Active Substance: GADOBUTROL
     Indication: BREAST PAIN
     Dosage: 13 ML, ONCE
     Route: 042
     Dates: start: 20191212, end: 20191212

REACTIONS (1)
  - Lip swelling [Recovered/Resolved]

NARRATIVE: CASE EVENT DATE: 20191212
